FAERS Safety Report 14652258 (Version 3)
Quarter: 2018Q2

REPORT INFORMATION
  Report Type: Spontaneous
  Country: DE (occurrence: DE)
  Receive Date: 20180318
  Receipt Date: 20180613
  Transmission Date: 20180711
  Serious: Yes (Hospitalization)
  Sender: FDA-Public Use
  Company Number: PHHY2017DE201766

PATIENT
  Age: 78 Year
  Sex: Female
  Weight: 57 kg

DRUGS (34)
  1. CARBOPLATIN. [Suspect]
     Active Substance: CARBOPLATIN
     Indication: NON-SMALL CELL LUNG CANCER
     Route: 041
  2. PREDNISOLONE. [Concomitant]
     Active Substance: PREDNISOLONE
     Dosage: 5 MG, QD
     Route: 048
     Dates: start: 20171125
  3. DIGITOXIN [Concomitant]
     Active Substance: DIGITOXIN
     Dosage: 0.5 MG, UNK
     Route: 041
  4. MOVICOL [Concomitant]
     Active Substance: POLYETHYLENE GLYCOL 3350\POTASSIUM CHLORIDE\SODIUM BICARBONATE\SODIUM CHLORIDE
     Indication: PROPHYLAXIS
     Dosage: 1 DF, UNK
     Route: 048
  5. FOLICOMBIN [Concomitant]
     Indication: ANAEMIA
     Dosage: 1 DF, QD
     Route: 048
  6. DIGITOXIN [Concomitant]
     Active Substance: DIGITOXIN
     Indication: SUPRAVENTRICULAR TACHYCARDIA
     Dosage: 0.07 MG, QD
     Route: 048
     Dates: start: 20171216
  7. FUROSEMIDE. [Concomitant]
     Active Substance: FUROSEMIDE
     Indication: CARDIOMYOPATHY
     Dosage: 20 MG, QD
     Route: 048
     Dates: end: 20171213
  8. NOVAMIN [Concomitant]
     Indication: PAIN
     Dosage: 1 G, UNK
     Route: 041
  9. PANTOZOL [Concomitant]
     Active Substance: PANTOPRAZOLE SODIUM
     Indication: PROPHYLAXIS
     Dosage: 40 MG, QD
     Route: 048
     Dates: end: 20180115
  10. FENTANIL [Concomitant]
     Active Substance: FENTANYL
     Indication: PAIN
     Dosage: 50 UG, TID
     Route: 062
  11. METRONIDAZOLE. [Concomitant]
     Active Substance: METRONIDAZOLE
     Indication: DIARRHOEA INFECTIOUS
     Dosage: 1200 MG, QD
     Route: 048
     Dates: start: 20171121, end: 20171128
  12. MCP [Concomitant]
     Active Substance: METOCLOPRAMIDE HYDROCHLORIDE
     Indication: NAUSEA
     Dosage: 3 DF, QD
     Route: 041
     Dates: start: 20171218, end: 20171228
  13. DEXAMETHASONE. [Concomitant]
     Active Substance: DEXAMETHASONE
     Indication: PROPHYLAXIS
     Dosage: 8 MG, UNK
     Route: 041
  14. FURESIS [Concomitant]
     Active Substance: FUROSEMIDE
     Dosage: 80 MG, QD
     Route: 048
     Dates: start: 20180102, end: 20180115
  15. ULTIBRO [Concomitant]
     Active Substance: GLYCOPYRRONIUM\INDACATEROL
     Indication: CHRONIC OBSTRUCTIVE PULMONARY DISEASE
     Dosage: 1 DF, QD (ONE PUFF DAILY)
     Route: 065
  16. PREDNISOLONE. [Concomitant]
     Active Substance: PREDNISOLONE
     Dosage: 200 MG, UNK
     Route: 041
  17. ABRAXANE [Suspect]
     Active Substance: PACLITAXEL
     Indication: NON-SMALL CELL LUNG CANCER
     Dosage: 80 MG/M2, QD
     Route: 041
     Dates: start: 20171116, end: 20171130
  18. PULMICORT TURBUHALER [Concomitant]
     Active Substance: BUDESONIDE
     Indication: CHRONIC OBSTRUCTIVE PULMONARY DISEASE
     Dosage: 2 DF, QD (1 PUFF TWICE PER DAY)
     Route: 065
  19. FURESIS [Concomitant]
     Active Substance: FUROSEMIDE
     Dosage: 40 MG, QD
     Route: 048
     Dates: start: 20171216
  20. FURESIS [Concomitant]
     Active Substance: FUROSEMIDE
     Dosage: 60 MG, QD
     Route: 048
     Dates: start: 20171228, end: 20180101
  21. CLEXANE [Concomitant]
     Active Substance: ENOXAPARIN SODIUM
     Indication: SUPRAVENTRICULAR TACHYCARDIA
     Dosage: 0.4 ML, QD
     Route: 058
     Dates: start: 20171220, end: 20180103
  22. ALLOPURINOL. [Concomitant]
     Active Substance: ALLOPURINOL
     Indication: PROPHYLAXIS
     Dosage: 100 MG, QD
     Route: 048
  23. THIAMAZOL [Concomitant]
     Active Substance: METHIMAZOLE
     Indication: HYPOTHYROIDISM
     Dosage: 5 MG, QD
     Route: 048
  24. NATRIUM CHLORIDUM [Concomitant]
     Active Substance: SODIUM CHLORIDE
     Indication: PROPHYLAXIS
     Dosage: 1000 ML, UNK
     Route: 041
  25. PREDNISOLONE. [Concomitant]
     Active Substance: PREDNISOLONE
     Indication: CHRONIC OBSTRUCTIVE PULMONARY DISEASE
     Dosage: 10 MG, QD
     Route: 048
     Dates: start: 20171114, end: 20171124
  26. DEKRISTOL [Concomitant]
     Active Substance: CHOLECALCIFEROL
     Indication: OSTEOPOROSIS
     Dosage: 2 DF, QW
     Route: 048
  27. AMINOVEN [Concomitant]
     Active Substance: AMINO ACIDS
     Indication: NAUSEA
     Dosage: 1 L, QD
     Route: 041
     Dates: start: 20171215, end: 20180103
  28. FURESIS [Concomitant]
     Active Substance: FUROSEMIDE
     Indication: CARDIOMYOPATHY
     Dosage: 40 MG, QD
     Route: 048
     Dates: start: 20171214, end: 20171227
  29. ONDANSETRON [Concomitant]
     Active Substance: ONDANSETRON
     Indication: PROPHYLAXIS
     Dosage: 8 MG, UNK
     Route: 041
  30. ACTRAPID [Concomitant]
     Active Substance: INSULIN HUMAN
     Indication: DIABETES MELLITUS
     Dosage: 1 IU, UNK
     Route: 058
  31. METOPROLOL. [Concomitant]
     Active Substance: METOPROLOL
     Indication: HYPERTENSION
     Dosage: 23.75 MG, QD
     Route: 048
  32. PREDNISOLONE. [Concomitant]
     Active Substance: PREDNISOLONE
     Indication: RHEUMATOID ARTHRITIS
     Dosage: 20 MILLIGRAM
     Route: 048
     Dates: end: 20171113
  33. NOVAMIN [Concomitant]
     Dosage: 1500 MG, QD
     Route: 048
  34. PROLIA [Concomitant]
     Active Substance: DENOSUMAB
     Indication: OSTEOPOROSIS
     Dosage: 360 MG, QMO ; 12 MILLIGRAM
     Route: 048

REACTIONS (8)
  - Thrombocytopenia [Recovered/Resolved]
  - Anaemia [Recovered/Resolved with Sequelae]
  - Pseudomonas bronchitis [Recovered/Resolved]
  - Anaemia [Recovered/Resolved with Sequelae]
  - Enterobacter tracheobronchitis [Recovered/Resolved]
  - Anaemia [Not Recovered/Not Resolved]
  - Peripheral motor neuropathy [Unknown]
  - White blood cell count decreased [Recovered/Resolved]

NARRATIVE: CASE EVENT DATE: 20171123
